FAERS Safety Report 4341378-7 (Version None)
Quarter: 2004Q2

REPORT INFORMATION
  Report Type: 
  Country: None (occurrence: None)
  Receive Date: 20040414
  Receipt Date: 20040405
  Transmission Date: 20050107
  Serious: Yes (Hospitalization)
  Sender: FDA-Public Use
  Company Number: 2004023040

PATIENT
  Age: 70 Year
  Sex: Female
  Weight: 61.2356 kg

DRUGS (15)
  1. COOL MINT LISTERINE (EUCALYPTOL, MENTHOL, METHYL SALICYLATE, THYMOL) [Suspect]
     Dosage: 1-2 TIMES PER DAY, ORAL TOPICAL
     Route: 048
  2. LIOTHYRONINE SODIUM [Concomitant]
  3. OXYCOCET (OXYCODONE HYDROCHLORIDE, PARACETAMOL) [Concomitant]
  4. CARISOPROLOL [Concomitant]
  5. MAGNESIUM [Concomitant]
  6. LANSOPRAZOLE [Concomitant]
  7. LOSARTAN POTASSIUM [Concomitant]
  8. VENLAFAXINE HCL [Concomitant]
  9. SPIRONOLACTONE [Concomitant]
  10. IRON [Concomitant]
  11. CALCIUM [Concomitant]
  12. CENTRUM SILVER (ASCORBIC ACID, CALCIUM, MINERALS NOS, RETINOL, TOCOPHE [Concomitant]
  13. CYANOCOBALAMIN [Concomitant]
  14. B-KOMPLEX ^LECIVA^ (CALCIUM PANTOTHENATE, NICOTINAMIDE, PYRIDOXINE HYD [Concomitant]
  15. ALENDRONATE SODIUM [Concomitant]

REACTIONS (2)
  - PANCREATIC MASS [None]
  - THYROID GLAND CANCER [None]
